FAERS Safety Report 5003210-8 (Version None)
Quarter: 2006Q2

REPORT INFORMATION
  Report Type: 
  Country: None (occurrence: None)
  Receive Date: 20060510
  Receipt Date: 20060427
  Transmission Date: 20061013
  Serious: Yes (Other)
  Sender: FDA-Public Use
  Company Number: 2006057185

PATIENT
  Age: 36 Year
  Sex: Male

DRUGS (2)
  1. VFEND [Suspect]
     Indication: BRONCHOPULMONARY ASPERGILLOSIS
     Dosage: 400 MG, ORAL
     Route: 048
     Dates: start: 20060419, end: 20060425
  2. AMPHOTERICIN B [Concomitant]

REACTIONS (8)
  - BRONCHIAL OBSTRUCTION [None]
  - BURNING SENSATION [None]
  - DYSPNOEA [None]
  - HAEMOPTYSIS [None]
  - HYPERSENSITIVITY [None]
  - MUCOUS MEMBRANE DISORDER [None]
  - RESPIRATORY DISORDER [None]
  - VITAL CAPACITY DECREASED [None]
